FAERS Safety Report 12720443 (Version 1)
Quarter: 2016Q3

REPORT INFORMATION
  Report Type: Spontaneous
  Country: FR (occurrence: FR)
  Receive Date: 20160907
  Receipt Date: 20160907
  Transmission Date: 20161109
  Serious: Yes (Hospitalization)
  Sender: FDA-Public Use
  Company Number: FR-AUROBINDO-AUR-APL-2016-11037

PATIENT
  Age: 26 Year
  Sex: Male

DRUGS (7)
  1. TRAMADOL / PARACETAMOL 37.5 MG/325 MG EFFERVESCENT TABLE [Suspect]
     Active Substance: ACETAMINOPHEN\TRAMADOL
     Indication: PAIN
     Dosage: 1 DF, ONCE A DAY
     Route: 048
     Dates: start: 20160713, end: 20160721
  2. PIPERACILLIN [Suspect]
     Active Substance: PIPERACILLIN
     Indication: ANTIBIOTIC PROPHYLAXIS
     Dosage: UNK
     Route: 042
     Dates: start: 20160610, end: 20160726
  3. TAZOBACTAM [Suspect]
     Active Substance: TAZOBACTAM
     Indication: ANTIBIOTIC PROPHYLAXIS
     Dosage: UNK
     Dates: start: 20160610, end: 20160726
  4. ALPRAZOLAM MYLAN [Suspect]
     Active Substance: ALPRAZOLAM
     Indication: PRODUCT USED FOR UNKNOWN INDICATION
     Dosage: 1 DF, ONCE A DAY
     Dates: start: 20160712, end: 20160728
  5. NEFOPAM MYLAN [Suspect]
     Active Substance: NEFOPAM
     Indication: PRODUCT USED FOR UNKNOWN INDICATION
     Dosage: UNK
     Route: 042
     Dates: start: 20160722
  6. HYDROXYZINE ARROW FILM-COATED TABLET [Suspect]
     Active Substance: HYDROXYZINE HYDROCHLORIDE
     Indication: PRODUCT USED FOR UNKNOWN INDICATION
     Dosage: 1 DF, DAILY
     Route: 048
     Dates: start: 20160712, end: 20160724
  7. VANCOMYCIN [Suspect]
     Active Substance: VANCOMYCIN
     Indication: ANTIBIOTIC PROPHYLAXIS
     Dosage: 3.5 MG, ONCE A DAY
     Route: 042
     Dates: start: 20160610, end: 20160726

REACTIONS (5)
  - Rash maculo-papular [Recovering/Resolving]
  - Pruritus generalised [Recovering/Resolving]
  - Eosinophilia [Not Recovered/Not Resolved]
  - Blood creatinine increased [None]
  - Renal impairment [None]

NARRATIVE: CASE EVENT DATE: 20160717
